FAERS Safety Report 7416880-1 (Version None)
Quarter: 2011Q2

REPORT INFORMATION
  Report Type: 
  Country: None (occurrence: None)
  Receive Date: 20110407
  Receipt Date: 20110405
  Transmission Date: 20111010
  Serious: Yes (Life-Threatening, Hospitalization)
  Sender: FDA-Public Use
  Company Number: SP03592

PATIENT
  Age: 60 Year
  Sex: Female

DRUGS (1)
  1. MOVIPREP [Suspect]
     Indication: COLONOSCOPY
     Dosage: ORAL
     Route: 048
     Dates: start: 20101201, end: 20101208

REACTIONS (12)
  - COLD SWEAT [None]
  - VOMITING [None]
  - EMPYEMA [None]
  - OESOPHAGEAL RUPTURE [None]
  - PALLOR [None]
  - PLEURAL EFFUSION [None]
  - ATELECTASIS [None]
  - GENERAL PHYSICAL HEALTH DETERIORATION [None]
  - CHEST PAIN [None]
  - SEPSIS [None]
  - PNEUMOMEDIASTINUM [None]
  - RESPIRATORY FAILURE [None]
